FAERS Safety Report 9334410 (Version 1)
Quarter: 2013Q2

REPORT INFORMATION
  Report Type: Spontaneous
  Country: US (occurrence: US)
  Receive Date: 20130606
  Receipt Date: 20130606
  Transmission Date: 20140414
  Serious: No
  Sender: FDA-Public Use
  Company Number: US-AMGEN-USASP2013029533

PATIENT
  Age: 72 Year
  Sex: Female

DRUGS (6)
  1. PROLIA [Suspect]
     Indication: OSTEOPOROSIS POSTMENOPAUSAL
     Dosage: UNK
     Dates: start: 201210
  2. CALCIUM WITH VITAMIN D             /00944201/ [Concomitant]
  3. BUPROPION [Concomitant]
  4. CITALOPRAM [Concomitant]
  5. SIMVASTATIN [Concomitant]
     Indication: BLOOD CHOLESTEROL INCREASED
  6. ASPIRIN [Concomitant]
     Dosage: 81 MG, UNK

REACTIONS (3)
  - Weight decreased [Unknown]
  - Myalgia [Unknown]
  - Weight increased [Unknown]
